FAERS Safety Report 5119066-9 (Version None)
Quarter: 2006Q3

REPORT INFORMATION
  Report Type: 
  Country: None (occurrence: None)
  Receive Date: 20060927
  Receipt Date: 20060915
  Transmission Date: 20061208
  Serious: Yes (Hospitalization)
  Sender: FDA-Public Use
  Company Number: US-2006-027421

PATIENT
  Age: 41 Year
  Sex: Female

DRUGS (15)
  1. CAMPATH [Suspect]
     Indication: LIVER TRANSPLANT
     Dosage: 30 MG, 1 DOSE, INTRAVENOUS
     Route: 042
     Dates: start: 20051108, end: 20051108
  2. CAMPATH [Suspect]
     Indication: LIVER TRANSPLANT
     Dosage: 30 MG, 1 DOSE, INTRAVENOUS
     Route: 042
     Dates: start: 20051112, end: 20051112
  3. TACROLIMUS (TACROLIMUS) [Concomitant]
  4. PROTONIX [Concomitant]
  5. SEPTRA [Concomitant]
  6. VALCYTE (VALGANCICLOVIR HYDROHCLORIDE) [Concomitant]
  7. NORVASC [Concomitant]
  8. MVI (VITAMINS NOS) [Concomitant]
  9. ACTIGALL [Concomitant]
  10. NORCO (HYDROCODONE BITARTRATE) [Concomitant]
  11. PENTAMIDINE (PENTAMIDINE) [Concomitant]
  12. PROPRANOLOL [Concomitant]
  13. MAGNESIUM (MAGNESIUM) [Concomitant]
  14. POTASSIUM (POTASSIUM) [Concomitant]
  15. MYCELEX [Concomitant]

REACTIONS (9)
  - BILE DUCT OBSTRUCTION [None]
  - BILE DUCT STENOSIS [None]
  - BILOMA [None]
  - HAEMATOCRIT DECREASED [None]
  - HEADACHE [None]
  - HEPATIC FAILURE [None]
  - HEPATIC NECROSIS [None]
  - LIVER TRANSPLANT REJECTION [None]
  - SPLENOMEGALY [None]
